FAERS Safety Report 9697074 (Version 1)
Quarter: 2013Q4

REPORT INFORMATION
  Report Type: Report from Study
  Country: FR (occurrence: FR)
  Receive Date: 20131120
  Receipt Date: 20131120
  Transmission Date: 20140711
  Serious: Yes (Other)
  Sender: FDA-Public Use
  Company Number: FR-ROCHE-1305777

PATIENT
  Sex: 0

DRUGS (5)
  1. VEMURAFENIB [Suspect]
     Indication: NEOPLASM MALIGNANT
     Route: 065
  2. SORAFENIB [Suspect]
     Indication: NEOPLASM MALIGNANT
     Route: 065
  3. SUNITINIB [Suspect]
     Indication: NEOPLASM MALIGNANT
     Route: 065
  4. EVEROLIMUS [Suspect]
     Indication: NEOPLASM MALIGNANT
     Route: 065
  5. LAPATINIB [Suspect]
     Indication: NEOPLASM MALIGNANT
     Route: 065

REACTIONS (8)
  - Asthenia [Unknown]
  - Palmar-plantar erythrodysaesthesia syndrome [Unknown]
  - Pain [Unknown]
  - Diarrhoea [Unknown]
  - Nausea [Unknown]
  - Rash [Unknown]
  - Dyspnoea [Unknown]
  - Hypertension [Unknown]
